FAERS Safety Report 10090075 (Version 1)
Quarter: 2014Q2

REPORT INFORMATION
  Report Type: Spontaneous
  Country: JP (occurrence: JP)
  Receive Date: 20140421
  Receipt Date: 20140421
  Transmission Date: 20141212
  Serious: Yes (Other)
  Sender: FDA-Public Use
  Company Number: PHHY2014JP044259

PATIENT
  Age: 1 Year
  Sex: Female

DRUGS (2)
  1. ISONIAZID [Suspect]
     Indication: BOVINE TUBERCULOSIS
  2. RIFAMPICIN [Suspect]
     Indication: BOVINE TUBERCULOSIS

REACTIONS (2)
  - Erythema multiforme [Unknown]
  - Drug hypersensitivity [Unknown]
